FAERS Safety Report 21324102 (Version 3)
Quarter: 2022Q4

REPORT INFORMATION
  Report Type: Spontaneous
  Country: US (occurrence: US)
  Receive Date: 20220912
  Receipt Date: 20221216
  Transmission Date: 20230113
  Serious: No
  Sender: FDA-Public Use
  Company Number: US-BRISTOL-MYERS SQUIBB COMPANY-2022-104232

PATIENT
  Age: 45 Year
  Sex: Male
  Weight: 101.15 kg

DRUGS (1)
  1. REVLIMID [Suspect]
     Active Substance: LENALIDOMIDE
     Indication: Plasma cell myeloma
     Dosage: FREQ : 3 WEEKS ON 1 WEEK OFF
     Route: 048

REACTIONS (5)
  - Product dose omission issue [Unknown]
  - Suspected COVID-19 [Unknown]
  - Nasopharyngitis [Unknown]
  - Influenza [Recovering/Resolving]
  - Platelet count decreased [Unknown]

NARRATIVE: CASE EVENT DATE: 20220901
